FAERS Safety Report 4280453-2 (Version None)
Quarter: 2004Q1

REPORT INFORMATION
  Report Type: 
  Country: None (occurrence: None)
  Receive Date: 20040128
  Receipt Date: 20040128
  Transmission Date: 20041129
  Serious: Yes (Life-Threatening, Hospitalization, Other)
  Sender: FDA-Public Use
  Company Number: None

PATIENT
  Age: 57 Year
  Sex: Male

DRUGS (1)
  1. GATIFLOXACIN [Suspect]
     Indication: URINARY TRACT INFECTION
     Dosage: 400 MG QD
     Dates: start: 20021225, end: 20021231

REACTIONS (3)
  - HEPATIC CIRRHOSIS [None]
  - HYPERGLYCAEMIA [None]
  - MENTAL STATUS CHANGES [None]
